FAERS Safety Report 15209396 (Version 1)
Quarter: 2018Q3

REPORT INFORMATION
  Report Type: Spontaneous
  Country: US (occurrence: US)
  Receive Date: 20180727
  Receipt Date: 20180727
  Transmission Date: 20181010
  Serious: No
  Sender: FDA-Public Use
  Company Number: US-SA-2018SA193871

PATIENT
  Age: 53 Year
  Sex: Female

DRUGS (1)
  1. TOUJEO [Suspect]
     Active Substance: INSULIN GLARGINE
     Indication: TYPE 1 DIABETES MELLITUS
     Dosage: 16 U, QD
     Route: 058
     Dates: start: 2017

REACTIONS (3)
  - Product storage error [Unknown]
  - Blood glucose fluctuation [Unknown]
  - Intentional product misuse [Unknown]
